FAERS Safety Report 25391352 (Version 7)
Quarter: 2025Q4

REPORT INFORMATION
  Report Type: Report from Study
  Country: CA (occurrence: CA)
  Receive Date: 20250603
  Receipt Date: 20251128
  Transmission Date: 20260117
  Serious: Yes (Other)
  Sender: BAUSCH AND LOMB
  Company Number: CA-BAUSCH-BL-2025-002564

PATIENT
  Age: 80 Year
  Sex: Male
  Weight: 113.4 kg

DRUGS (2)
  1. SILIQ [Suspect]
     Active Substance: BRODALUMAB
     Indication: Psoriasis
     Dosage: 210 MG / 1.5 ML, WEEKLY (WEEK 0-2)
     Route: 058
     Dates: start: 20250214, end: 202502
  2. SILIQ [Suspect]
     Active Substance: BRODALUMAB
     Dosage: 210 MG / 1.5 ML, Q2 WEEKS
     Route: 058
     Dates: start: 202503, end: 2025

REACTIONS (8)
  - Morphoea [Not Recovered/Not Resolved]
  - Discomfort [Not Recovered/Not Resolved]
  - Hyperhidrosis [Recovered/Resolved]
  - Nervousness [Recovered/Resolved]
  - Restlessness [Recovered/Resolved]
  - Anxiety [Recovered/Resolved]
  - Patient dissatisfaction with treatment [Unknown]
  - Therapy interrupted [Unknown]

NARRATIVE: CASE EVENT DATE: 20250101
